FAERS Safety Report 4476683-7 (Version None)
Quarter: 2004Q4

REPORT INFORMATION
  Report Type: 
  Country: None (occurrence: None)
  Receive Date: 20041015
  Receipt Date: 20041015
  Transmission Date: 20050328
  Serious: Yes (Hospitalization)
  Sender: FDA-Public Use
  Company Number: None

PATIENT
  Age: 73 Year
  Sex: Male
  Weight: 88.6 kg

DRUGS (12)
  1. RAMIPRIL [Suspect]
     Indication: HYPERTENSION
     Dosage: 2.5MG QD ORAL
     Route: 048
  2. ASPIRIN [Concomitant]
  3. DOXYCYCLINE [Concomitant]
  4. FUROSEMIDE [Concomitant]
  5. NOVOLIN 70/30 [Concomitant]
  6. MIRTAZAPINE [Concomitant]
  7. NITROGLYCERIN [Concomitant]
  8. OMEPRAZOLE [Concomitant]
  9. PREDNISONE [Concomitant]
  10. RANITIDINE [Concomitant]
  11. ZAFIRLUKAST [Concomitant]
  12. SALMETEROL [Concomitant]

REACTIONS (7)
  - ANGIONEUROTIC OEDEMA [None]
  - BLOOD GLUCOSE DECREASED [None]
  - DYSKINESIA [None]
  - DYSPNOEA [None]
  - HYPERHIDROSIS [None]
  - MARKEDLY REDUCED DIETARY INTAKE [None]
  - SWELLING FACE [None]
